FAERS Safety Report 7590774-3 (Version None)
Quarter: 2011Q3

REPORT INFORMATION
  Report Type: 
  Country: None (occurrence: None)
  Receive Date: 20110705
  Receipt Date: 20110621
  Transmission Date: 20111222
  Serious: Yes (Hospitalization, Other)
  Sender: FDA-Public Use
  Company Number: PHHY2011FR56133

PATIENT
  Sex: Male

DRUGS (11)
  1. PERINDOPRIL ERBUMINE [Concomitant]
  2. ESOMEPRAZOLE MAGNESIUM [Concomitant]
  3. RASILEZ (ALISKIREN) [Concomitant]
  4. BUMETANIDE [Concomitant]
  5. AFINITOR [Suspect]
     Dosage: 5 MG, PER DAY
     Route: 048
     Dates: start: 20110509
  6. ATORVASTATIN CALCIUM [Concomitant]
  7. NIFEDIPINE [Concomitant]
  8. AFINITOR [Suspect]
     Indication: RENAL CANCER METASTATIC
     Dosage: 10 MG, PER DAY
     Route: 048
     Dates: start: 20110324, end: 20110328
  9. BECLOMETHASONE DIPROPIONATE [Concomitant]
  10. KALEORID [Concomitant]
  11. PREDNISOLONE [Concomitant]
     Dosage: 20 MG, PER DAY
     Dates: start: 20110509

REACTIONS (9)
  - CREATININE RENAL CLEARANCE DECREASED [None]
  - OEDEMA PERIPHERAL [None]
  - LUNG DISORDER [None]
  - HAEMOGLOBIN DECREASED [None]
  - GENERAL PHYSICAL HEALTH DETERIORATION [None]
  - DYSPNOEA [None]
  - PYREXIA [None]
  - HEART SOUNDS ABNORMAL [None]
  - CARDIAC MURMUR [None]
